FAERS Safety Report 5493336-7 (Version None)
Quarter: 2007Q4

REPORT INFORMATION
  Report Type: 
  Country: None (occurrence: None)
  Receive Date: 20071023
  Receipt Date: 20071011
  Transmission Date: 20080405
  Serious: Yes (Other)
  Sender: FDA-Public Use
  Company Number: GB-BAYER-200716040GDS

PATIENT
  Age: 62 Year
  Sex: Male
  Weight: 78 kg

DRUGS (6)
  1. ASPIRIN [Suspect]
     Indication: MYOCARDIAL INFARCTION
     Route: 065
  2. HEPARIN [Suspect]
     Indication: MYOCARDIAL INFARCTION
     Route: 065
  3. HEPARIN [Suspect]
     Route: 065
  4. TENECTEPLASE [Suspect]
     Indication: MYOCARDIAL INFARCTION
     Route: 065
  5. APROTININ [Concomitant]
     Indication: CARDIOPULMONARY BYPASS
     Route: 065
  6. APROTININ [Concomitant]
     Route: 065

REACTIONS (3)
  - MEDICATION ERROR [None]
  - POST PROCEDURAL HAEMORRHAGE [None]
  - WOUND SECRETION [None]
